FAERS Safety Report 8338146-8 (Version None)
Quarter: 2012Q2

REPORT INFORMATION
  Report Type: 
  Country: None (occurrence: None)
  Receive Date: 20120504
  Receipt Date: 20120425
  Transmission Date: 20120825
  Serious: Yes (Other)
  Sender: FDA-Public Use
  Company Number: US-JNJFOC-20120412807

PATIENT
  Sex: Male
  Weight: 106.6 kg

DRUGS (4)
  1. DURAGESIC-100 [Concomitant]
     Indication: PAIN
     Route: 062
     Dates: start: 20020101
  2. MOTRIN IB [Suspect]
     Indication: SURGERY
     Route: 048
  3. MOTRIN IB [Suspect]
     Indication: PAIN
     Route: 048
  4. DURAGESIC-100 [Concomitant]
     Indication: SURGERY
     Route: 062
     Dates: start: 20020101

REACTIONS (5)
  - DYSPEPSIA [None]
  - ADVERSE EVENT [None]
  - GASTROINTESTINAL ULCER [None]
  - MEMORY IMPAIRMENT [None]
  - MUSCLE SPASMS [None]
